FAERS Safety Report 18730468 (Version 1)
Quarter: 2021Q1

REPORT INFORMATION
  Report Type: Spontaneous
  Country: FR (occurrence: FR)
  Receive Date: 20210112
  Receipt Date: 20210112
  Transmission Date: 20210419
  Serious: Yes (Other)
  Sender: FDA-Public Use
  Company Number: FR-TEVA-2021-FR-1867054

PATIENT
  Age: 13 Year
  Sex: Female
  Weight: 36.8 kg

DRUGS (6)
  1. ZELITREX 250 MG, COMPRIME ENROBE [Concomitant]
     Indication: INFECTION PROPHYLAXIS
     Dosage: 3 DF
     Route: 048
     Dates: start: 20200131
  2. BACTRIM [Concomitant]
     Active Substance: SULFAMETHOXAZOLE\TRIMETHOPRIM
     Indication: INFECTION PROPHYLAXIS
     Dosage: 2400 MG
     Route: 048
     Dates: start: 202005
  3. EVEROLIMUS. [Suspect]
     Active Substance: EVEROLIMUS
     Indication: TRANSPLANT
     Dosage: 5 MG
     Route: 048
     Dates: start: 20201202, end: 20201205
  4. CELLCEPT [Concomitant]
     Active Substance: MYCOPHENOLATE MOFETIL\MYCOPHENOLATE MOFETIL HYDROCHLORIDE
     Indication: TRANSPLANT
     Dosage: 400 MG
     Route: 048
     Dates: start: 202004
  5. CICLOSPORINE [Concomitant]
     Active Substance: CYCLOSPORINE
     Indication: TRANSPLANT
     Dosage: 140 MG
     Route: 048
     Dates: start: 202004
  6. BICARBONATE DE SODIUM [Concomitant]
     Active Substance: SODIUM BICARBONATE
     Dosage: 2 G
     Route: 048
     Dates: start: 2016, end: 202012

REACTIONS (3)
  - Epistaxis [Recovered/Resolved]
  - Chest discomfort [Recovered/Resolved]
  - Headache [Recovered/Resolved]

NARRATIVE: CASE EVENT DATE: 20201202
